FAERS Safety Report 9316352 (Version 1)
Quarter: 2013Q2

REPORT INFORMATION
  Report Type: Spontaneous
  Country: US (occurrence: None)
  Receive Date: 20130528
  Receipt Date: 20130528
  Transmission Date: 20140414
  Serious: Yes (Other)
  Sender: FDA-Public Use
  Company Number: None

PATIENT
  Age: 48 Year
  Sex: Female
  Weight: 69.4 kg

DRUGS (1)
  1. DOCETAXEL 80 MG HOSPIRA [Suspect]
     Indication: BREAST CANCER
     Dosage: Q21DAYS
     Route: 042
     Dates: start: 20130213

REACTIONS (2)
  - Pain [None]
  - Swelling [None]
